FAERS Safety Report 5472175-7 (Version None)
Quarter: 2007Q3

REPORT INFORMATION
  Report Type: 
  Country: None (occurrence: None)
  Receive Date: 20070925
  Receipt Date: 20070910
  Transmission Date: 20080115
  Serious: Yes (Other)
  Sender: FDA-Public Use
  Company Number: 6274 / 6037367

PATIENT
  Age: 21 Year
  Sex: Female

DRUGS (22)
  1. MESNA [Suspect]
     Indication: BURKITT'S LYMPHOMA
     Dosage: 360 MG/M2 (360 MG/M2, 1-5 DAYS) INTRAVENOUS (NOT OTHERWISE SPECIFIED)
     Route: 042
  2. IFOSFAMIDE [Suspect]
     Indication: BURKITT'S LYMPHOMA
     Dosage: 1500 MG/M2 (1500 MG/M2, 1-5 DAYS) INTRAVENOUS (NOT OTHERWISE SPECIFIED)
     Route: 042
  3. DOXORUBICIN (INTRAVENOUS INFUSION) (DOXORUBICIN) [Suspect]
     Indication: BURKITT'S LYMPHOMA
     Dosage: 40 MG (40 MG, 1 IN 1 D) INTRAVENOUS (NOT OTHERWISE SPECIFIED)
     Route: 042
  4. CYTARABINE [Suspect]
     Indication: BURKITT'S LYMPHOMA
     Dosage: (70 MG, 1 IN 1 D) INTRATHECAL; 12 H (2000 MG/M2) INTRAVENOUS (NOT OTHERWISE SPECIFIED)
  5. CYTARABINE [Suspect]
     Indication: BURKITT'S LYMPHOMA
     Dosage: (70 MG, 1 IN 1 D) INTRATHECAL; 12 H (2000 MG/M2) INTRAVENOUS (NOT OTHERWISE SPECIFIED)
  6. ETOPOSIDE [Suspect]
     Indication: BURKITT'S LYMPHOMA
     Dosage: 60 MG/M2 (60 MG/M2, 1-5 DAYS) INTRAVENOUS (NOT OTHERWISE SPECIFIED)
     Route: 042
  7. ALLOPURINOL [Suspect]
     Indication: TUMOUR LYSIS SYNDROME
     Dosage: 600 MG (300 MG, 2 IN 1 D) ORAL
     Route: 048
  8. ONDANSETRON HCL [Suspect]
     Indication: PROPHYLAXIS OF NAUSEA AND VOMITING
     Dosage: WHEN RECEIVING CHEMOTHERAPY (8 MG, 2 IN 1 D) ORAL
     Route: 048
  9. DEXAMETHASONE TAB [Suspect]
     Indication: PROPHYLAXIS OF NAUSEA AND VOMITING
     Dosage: WHEN RECEIVING CHEMOTHERAPY (8 MG, 2 IN 1 D) ORAL
     Route: 048
  10. METHOTREXATE [Suspect]
     Indication: BURKITT'S LYMPHOMA
     Dosage: SEE IMAGE
  11. METHOTREXATE [Suspect]
     Indication: BURKITT'S LYMPHOMA
     Dosage: SEE IMAGE
  12. METHOTREXATE [Suspect]
     Indication: BURKITT'S LYMPHOMA
     Dosage: SEE IMAGE
  13. CYCLOPHOSPHAMIDE [Suspect]
     Indication: BURKITT'S LYMPHOMA
     Dosage: SEE IMAGE
     Route: 042
  14. CYCLOPHOSPHAMIDE [Suspect]
     Indication: BURKITT'S LYMPHOMA
     Dosage: SEE IMAGE
     Route: 042
  15. LEUCOVORIN CALCIUM [Suspect]
     Indication: BURKITT'S LYMPHOMA
     Dosage: SEE IMAGE
  16. LEUCOVORIN CALCIUM [Suspect]
     Indication: BURKITT'S LYMPHOMA
     Dosage: SEE IMAGE
  17. LEUCOVORIN CALCIUM [Suspect]
     Indication: BURKITT'S LYMPHOMA
     Dosage: SEE IMAGE
  18. GRANULOCYTE COLONY-STIMULATING FACTOR (GRANULOCYTE COLONY STIMULATING [Suspect]
     Indication: BURKITT'S LYMPHOMA
     Dosage: 5 UG/KG (5 UG/KG, 1 IN 1 D) SUBCUTANEOUS
     Route: 058
  19. PROMETHAZINE [Suspect]
     Indication: PROPHYLAXIS OF NAUSEA AND VOMITING
     Dosage: AS NEEDED (25 MG, 1 IN 6 HR) ORAL
     Route: 048
  20. VINCRISTINE [Suspect]
     Indication: BURKITT'S LYMPHOMA
     Dosage: 1,5 MG/M2 (1,5 MG/M2, 1 IN 1 D) INTRAVENOUS (NOT OTHERWISE SPECIFIED)
     Route: 042
  21. NEUPOGEN [Suspect]
     Indication: DRUG USE FOR UNKNOWN INDICATION
     Dosage: AFTER COMPLETION OF EACH CHEMOTHERAPY CYCLE (480 MCG, 3 IN 1 WK) SUBCUTANEOUS
     Route: 058
  22. DARBEPOETIN ALFA (DARBEPOETIN ALFA) [Suspect]
     Indication: DRUG USE FOR UNKNOWN INDICATION
     Dosage: AFTER COMPLETION OF EACH CHEMOTHERAPY CYCLE (100 MCG, 1 IN 1 WK) SUBCUTANEOUS
     Route: 058

REACTIONS (19)
  - ASTHENIA [None]
  - B-CELL LYMPHOMA [None]
  - BACK PAIN [None]
  - CAESAREAN SECTION [None]
  - DIARRHOEA [None]
  - DRUG EXPOSURE DURING PREGNANCY [None]
  - FATIGUE [None]
  - FEBRILE NEUTROPENIA [None]
  - FIBROSIS [None]
  - HAEMOGLOBIN DECREASED [None]
  - HEADACHE [None]
  - HYPOACUSIS [None]
  - LYMPHADENOPATHY [None]
  - NEUTROPHIL PERCENTAGE INCREASED [None]
  - NON-HODGKIN'S LYMPHOMA [None]
  - PREMATURE BABY [None]
  - PYREXIA [None]
  - URINARY TRACT INFECTION [None]
  - WHITE BLOOD CELL COUNT INCREASED [None]
